FAERS Safety Report 4576111-7 (Version None)
Quarter: 2005Q1

REPORT INFORMATION
  Report Type: 
  Country: None (occurrence: None)
  Receive Date: 20050209
  Receipt Date: 20050201
  Transmission Date: 20050727
  Serious: Yes (Other)
  Sender: FDA-Public Use
  Company Number: PHEH2005US01536

PATIENT
  Sex: Female

DRUGS (1)
  1. ZELNORM [Suspect]

REACTIONS (6)
  - ABDOMINAL DISCOMFORT [None]
  - ABDOMINAL DISTENSION [None]
  - CONDITION AGGRAVATED [None]
  - DRUG INEFFECTIVE [None]
  - HAEMORRHAGE [None]
  - URINARY TRACT INFECTION [None]
